FAERS Safety Report 24882704 (Version 4)
Quarter: 2025Q3

REPORT INFORMATION
  Report Type: Report from Study
  Country: US (occurrence: US)
  Receive Date: 20250124
  Receipt Date: 20250821
  Transmission Date: 20251021
  Serious: Yes (Other)
  Sender: TRAVERE THERAPEUTICS
  Company Number: US-TRAVERE-2025TVT00037

PATIENT
  Age: 25 Year
  Sex: Female

DRUGS (5)
  1. FILSPARI [Suspect]
     Active Substance: SPARSENTAN
     Indication: IgA nephropathy
     Route: 048
     Dates: start: 20241213, end: 202502
  2. FILSPARI [Suspect]
     Active Substance: SPARSENTAN
     Route: 048
     Dates: start: 202504
  3. TARPEYO [Concomitant]
     Active Substance: BUDESONIDE
  4. TACROLIMUS [Concomitant]
     Active Substance: TACROLIMUS
  5. ROSUVASTATIN CALCIUM [Concomitant]
     Active Substance: ROSUVASTATIN CALCIUM

REACTIONS (7)
  - Hypertension [Unknown]
  - Aspartate aminotransferase increased [Unknown]
  - Headache [Unknown]
  - Laryngitis [Recovering/Resolving]
  - Conjunctivitis viral [Recovering/Resolving]
  - Illness [Recovering/Resolving]
  - Peripheral swelling [Unknown]

NARRATIVE: CASE EVENT DATE: 20250416
